FAERS Safety Report 5878936-4 (Version None)
Quarter: 2008Q3

REPORT INFORMATION
  Report Type: 
  Country: None (occurrence: None)
  Receive Date: 20080912
  Receipt Date: 20080828
  Transmission Date: 20090109
  Serious: Yes (Hospitalization)
  Sender: FDA-Public Use
  Company Number: FR-ELI_LILLY_AND_COMPANY-FR200809000125

PATIENT
  Age: 65 Year
  Sex: Female
  Weight: 51 kg

DRUGS (2)
  1. FORTEO [Suspect]
     Indication: OSTEOPOROSIS
     Dosage: 20 UG, DAILY (1/D)
     Route: 065
     Dates: start: 20071103
  2. DIGOXIN [Concomitant]
     Dosage: UNK, UNKNOWN
     Route: 065

REACTIONS (4)
  - BRONCHITIS [None]
  - EXTRASYSTOLES [None]
  - TACHYCARDIA [None]
  - WEIGHT DECREASED [None]
